FAERS Safety Report 24330132 (Version 1)
Quarter: 2024Q3

REPORT INFORMATION
  Report Type: Spontaneous
  Country: US (occurrence: US)
  Receive Date: 20240917
  Receipt Date: 20240917
  Transmission Date: 20241016
  Serious: Yes (Other)
  Sender: DR REDDYS
  Company Number: US-DRL-USA-SPO/USA/24/0013403

PATIENT
  Age: 29 Year
  Sex: Male

DRUGS (7)
  1. FLUOXETINE [Suspect]
     Active Substance: FLUOXETINE HYDROCHLORIDE
     Indication: Major depression
  2. FLUOXETINE [Suspect]
     Active Substance: FLUOXETINE HYDROCHLORIDE
  3. FLUOXETINE [Suspect]
     Active Substance: FLUOXETINE HYDROCHLORIDE
     Dosage: UNKNOWN DOSE (DOSE TAPPERED)
  4. BUPROPION [Suspect]
     Active Substance: BUPROPION
     Indication: Major depression
  5. BUPROPION [Suspect]
     Active Substance: BUPROPION
  6. ESKETAMINE [Concomitant]
     Active Substance: ESKETAMINE
     Indication: Major depression
     Dosage: 56 MG, TITRATED TO 86 MG AFTER THE FIRST DOSE,TWICE WEEKLY
     Route: 045
  7. ESKETAMINE [Concomitant]
     Active Substance: ESKETAMINE
     Dosage: 56 MG, TITRATED TO 86 MG AFTER THE FIRST DOSE,TWICE WEEKLY
     Route: 045

REACTIONS (4)
  - Erectile dysfunction [Recovering/Resolving]
  - Condition aggravated [Recovering/Resolving]
  - Dry mouth [Recovering/Resolving]
  - Drug ineffective [Recovering/Resolving]
